FAERS Safety Report 21523386 (Version 3)
Quarter: 2023Q1

REPORT INFORMATION
  Report Type: Report from Study
  Country: US (occurrence: US)
  Receive Date: 20221029
  Receipt Date: 20230112
  Transmission Date: 20230417
  Serious: No
  Sender: FDA-Public Use
  Company Number: US-ABBVIE-4148021

PATIENT
  Sex: Male

DRUGS (2)
  1. IMBRUVICA [Suspect]
     Active Substance: IBRUTINIB
     Indication: Chronic lymphocytic leukaemia
     Route: 048
     Dates: start: 20190824, end: 202212
  2. IMBRUVICA [Suspect]
     Active Substance: IBRUTINIB
     Indication: Chronic lymphocytic leukaemia
     Route: 048
     Dates: start: 20230109

REACTIONS (15)
  - Arthropod bite [Unknown]
  - COVID-19 [Unknown]
  - Decreased appetite [Unknown]
  - Osteopenia [Unknown]
  - Feeling guilty [Unknown]
  - Compression fracture [Unknown]
  - Urticaria [Unknown]
  - Asthenia [Unknown]
  - Influenza like illness [Unknown]
  - Back injury [Unknown]
  - Wound complication [Unknown]
  - Depression [Unknown]
  - Dysphonia [Unknown]
  - Lethargy [Unknown]
  - Nasopharyngitis [Unknown]

NARRATIVE: CASE EVENT DATE: 20200101
